FAERS Safety Report 8561308 (Version 2)
Quarter: 2013Q1

REPORT INFORMATION
  Report Type: Spontaneous
  Country: US (occurrence: US)
  Receive Date: 20120514
  Receipt Date: 20130116
  Transmission Date: 20140127
  Serious: Yes (Hospitalization, Other)
  Sender: FDA-Public Use
  Company Number: US-BAYER-2012-045927

PATIENT
  Age: 25 Year
  Sex: Female
  Weight: 79.37 kg

DRUGS (9)
  1. YAZ [Suspect]
     Dosage: UNK
     Dates: start: 2007, end: 2009
  2. YASMIN [Suspect]
     Dosage: UNK
     Dates: start: 2007, end: 2009
  3. OCELLA [Suspect]
     Dosage: UNK
     Dates: start: 2007, end: 2009
  4. TRETINOIN [Concomitant]
     Dosage: 0.05 %, UNK
  5. LEXAPRO [Concomitant]
     Dosage: 10 MG, UNK
  6. ABILIFY [Concomitant]
     Dosage: 2 MG, UNK
  7. LORAZEPAM [Concomitant]
     Dosage: 0.5 MG, UNK
  8. ACIPHEX [Concomitant]
     Dosage: 20 MG, UNK
  9. DOXYCYCLINE HYCLATE [DOXYCYCLINE HYCLATE] [Concomitant]

REACTIONS (11)
  - Pulmonary embolism [None]
  - Gallbladder disorder [None]
  - Cholecystitis chronic [None]
  - Injury [None]
  - Pain [None]
  - Anhedonia [None]
  - Quality of life decreased [None]
  - Emotional distress [None]
  - Fear [None]
  - Anxiety [None]
  - Pain [None]
